FAERS Safety Report 10168824 (Version 1)
Quarter: 2014Q2

REPORT INFORMATION
  Report Type: Spontaneous
  Country: US (occurrence: None)
  Receive Date: 20140509
  Receipt Date: 20140509
  Transmission Date: 20141212
  Serious: Yes (Death)
  Sender: FDA-Public Use
  Company Number: UTC-048006

PATIENT
  Age: 59 Year
  Sex: Female
  Weight: 40.82 kg

DRUGS (2)
  1. REMODULIN (10 MILLIGRAM/MILLILITERS, INJECTION FOR INFUSION (TREPROSTINIL SODIUIM) [Suspect]
     Indication: PULMONARY ARTERIAL HYPERTENSION
     Route: 058
     Dates: start: 20090825
  2. ADCIRCA (TADALAFIL) [Suspect]
     Indication: PRODUCT USED FOR UNKNOWN INDICATION

REACTIONS (1)
  - Death [None]
